FAERS Safety Report 4683525-3 (Version None)
Quarter: 2005Q2

REPORT INFORMATION
  Report Type: 
  Country: None (occurrence: None)
  Receive Date: 20050602
  Receipt Date: 20050317
  Transmission Date: 20051028
  Serious: Yes (Hospitalization)
  Sender: FDA-Public Use
  Company Number: USA050393447

PATIENT
  Sex: Female

DRUGS (1)
  1. CYMBALTA [Suspect]
     Indication: MAJOR DEPRESSION
     Dosage: 120 MG DAY

REACTIONS (3)
  - DRUG INEFFECTIVE [None]
  - MAJOR DEPRESSION [None]
  - PRESCRIBED OVERDOSE [None]
